FAERS Safety Report 5166222-X (Version None)
Quarter: 2006Q4

REPORT INFORMATION
  Report Type: 
  Country: None (occurrence: None)
  Receive Date: 20061206
  Receipt Date: 20041129
  Transmission Date: 20070319
  Serious: Yes (Life-Threatening, Hospitalization, Other)
  Sender: FDA-Public Use
  Company Number: US-ALLERGAN-200410657

PATIENT
  Age: 33 Year
  Sex: Female

DRUGS (1)
  1. BOTULINUM TOXIN TYPE A UNK [Suspect]
     Indication: SKIN WRINKLING
     Route: 030

REACTIONS (12)
  - BOTULISM [None]
  - DRUG INEFFECTIVE [None]
  - EUSTACHIAN TUBE DYSFUNCTION [None]
  - FEELING HOT [None]
  - HEADACHE [None]
  - INCORRECT DOSE ADMINISTERED [None]
  - OPISTHOTONUS [None]
  - OTITIS MEDIA [None]
  - PAIN [None]
  - POOR QUALITY DRUG ADMINISTERED [None]
  - REFUSAL OF TREATMENT BY PATIENT [None]
  - THERAPEUTIC PRODUCT CONTAMINATION [None]
